FAERS Safety Report 7142133-5 (Version None)
Quarter: 2010Q4

REPORT INFORMATION
  Report Type: 
  Country: None (occurrence: None)
  Receive Date: 20101207
  Receipt Date: 20101118
  Transmission Date: 20110411
  Serious: Yes (Hospitalization)
  Sender: FDA-Public Use
  Company Number: FR-PFIZER INC-2010152829

PATIENT
  Age: 63 Year
  Sex: Female

DRUGS (2)
  1. RHINADVIL [Suspect]
     Dosage: UNK
     Dates: start: 20101028, end: 20101030
  2. CALCIUM [Concomitant]

REACTIONS (2)
  - PURPURA [None]
  - SKIN NECROSIS [None]
